FAERS Safety Report 13635381 (Version 1)
Quarter: 2017Q2

REPORT INFORMATION
  Report Type: Spontaneous
  Country: US (occurrence: US)
  Receive Date: 20170531
  Receipt Date: 20170531
  Transmission Date: 20170830
  Serious: No
  Sender: FDA-Public Use
  Company Number: US-ASTELLAS-1711671

PATIENT
  Sex: Female

DRUGS (1)
  1. TARCEVA [Suspect]
     Active Substance: ERLOTINIB HYDROCHLORIDE
     Indication: NON-SMALL CELL LUNG CANCER
     Route: 065
     Dates: start: 201501, end: 201512

REACTIONS (5)
  - Neoplasm recurrence [Not Recovered/Not Resolved]
  - Skin fissures [Unknown]
  - Gastrointestinal motility disorder [Unknown]
  - Nail discolouration [Unknown]
  - Dry skin [Unknown]
